FAERS Safety Report 5942725-2 (Version None)
Quarter: 2008Q4

REPORT INFORMATION
  Report Type: 
  Country: None (occurrence: None)
  Receive Date: 20081103
  Receipt Date: 20081012
  Transmission Date: 20090506
  Serious: Yes (Death)
  Sender: FDA-Public Use
  Company Number: CHPA2008US17955

PATIENT
  Age: 42 Year
  Sex: Male

DRUGS (6)
  1. DIPHENHYDRAMINE HCL [Suspect]
     Dosage: ORAL
     Route: 048
  2. VALPROIC ACID (VALPROIC ACID) [Suspect]
     Dosage: ORAL
     Route: 048
  3. PHENERGAN [Suspect]
     Dosage: ORAL
     Route: 048
  4. GUANFACINE HYDROCHLORIDE [Suspect]
     Dosage: ORAL
     Route: 048
  5. VENLAFAXINE HCL [Suspect]
     Dosage: ORAL
     Route: 048
  6. LAMOTRIGINE [Suspect]
     Dosage: ORAL
     Route: 048

REACTIONS (1)
  - COMPLETED SUICIDE [None]
